FAERS Safety Report 21422708 (Version 1)
Quarter: 2022Q4

REPORT INFORMATION
  Report Type: Spontaneous
  Country: KR (occurrence: KR)
  Receive Date: 20221007
  Receipt Date: 20221007
  Transmission Date: 20230113
  Serious: Yes (Other)
  Sender: FDA-Public Use
  Company Number: KR-JNJFOC-20220962335

PATIENT
  Age: 30 Year
  Sex: Female

DRUGS (6)
  1. SPRAVATO [Suspect]
     Active Substance: ESKETAMINE
     Indication: Depression
     Dates: start: 202105
  2. SPRAVATO [Suspect]
     Active Substance: ESKETAMINE
     Indication: Personality disorder
  3. SPRAVATO [Suspect]
     Active Substance: ESKETAMINE
  4. VORTIOXETINE [Concomitant]
     Active Substance: VORTIOXETINE
     Route: 065
  5. PAROXETINE [Concomitant]
     Active Substance: PAROXETINE
     Route: 065
  6. ARIPIPRAZOLE [Concomitant]
     Active Substance: ARIPIPRAZOLE
     Indication: Hallucination, auditory
     Route: 065
     Dates: start: 202109

REACTIONS (9)
  - Suicidal ideation [Recovering/Resolving]
  - Intentional self-injury [Not Recovered/Not Resolved]
  - Hallucination, auditory [Unknown]
  - Disorientation [Unknown]
  - Depression [Recovering/Resolving]
  - Lethargy [Recovering/Resolving]
  - Confusional state [Unknown]
  - Emotional distress [Unknown]
  - Off label use [Unknown]

NARRATIVE: CASE EVENT DATE: 20210101
